FAERS Safety Report 12834192 (Version 1)
Quarter: 2016Q4

REPORT INFORMATION
  Report Type: Report from Study
  Country: BR (occurrence: BR)
  Receive Date: 20161010
  Receipt Date: 20161010
  Transmission Date: 20170207
  Serious: Yes (Death)
  Sender: FDA-Public Use
  Company Number: PHHY2016BR138692

PATIENT
  Sex: Male

DRUGS (5)
  1. HYDREA [Concomitant]
     Active Substance: HYDROXYUREA
     Indication: SICKLE CELL ANAEMIA
  2. FOLIC ACID. [Concomitant]
     Active Substance: FOLIC ACID
     Indication: SICKLE CELL ANAEMIA
  3. EXJADE [Suspect]
     Active Substance: DEFERASIROX
     Indication: FOETAL EXPOSURE DURING PREGNANCY
     Dosage: MATERNAL DOSE: 1000 MG QD
     Route: 064
  4. HYDREA [Concomitant]
     Active Substance: HYDROXYUREA
     Indication: IRON OVERLOAD
     Route: 064
  5. FOLIC ACID. [Concomitant]
     Active Substance: FOLIC ACID
     Indication: IRON OVERLOAD
     Route: 064

REACTIONS (3)
  - Anaemia [Fatal]
  - Respiratory failure [Fatal]
  - Foetal exposure during pregnancy [Unknown]
